FAERS Safety Report 6326570-4 (Version None)
Quarter: 2009Q3

REPORT INFORMATION
  Report Type: 
  Country: None (occurrence: None)
  Receive Date: 20090821
  Receipt Date: 20090814
  Transmission Date: 20100115
  Serious: Yes (Hospitalization)
  Sender: FDA-Public Use
  Company Number: CQT2-2008-00032

PATIENT
  Age: 51 Year
  Sex: Male
  Weight: 63 kg

DRUGS (9)
  1. ANAGRELIDE HCL [Suspect]
     Indication: ESSENTIAL THROMBOCYTHAEMIA
     Dosage: SEE IMAGE
     Route: 048
     Dates: start: 20070208, end: 20070330
  2. ANAGRELIDE HCL [Suspect]
     Indication: ESSENTIAL THROMBOCYTHAEMIA
     Dosage: SEE IMAGE
     Route: 048
     Dates: start: 20070330, end: 20080829
  3. ANAGRELIDE HCL [Suspect]
     Indication: ESSENTIAL THROMBOCYTHAEMIA
     Dosage: SEE IMAGE
     Route: 048
     Dates: start: 20080829
  4. GABAPENTIN [Concomitant]
  5. TRAMADOL HCL [Concomitant]
  6. INSULIN NOVORAPID (INSULIN ASPART) INJECTION [Concomitant]
  7. INSULATARD /00030504/ (INSULIN INJECTION, ISOPHANE) INJECTION [Concomitant]
  8. CEFUROXIM /00454602/ (CEFUROXIME SODIUM) UNKNOWN [Concomitant]
  9. CIPROFLOXACIN [Concomitant]

REACTIONS (5)
  - BLOOD POTASSIUM INCREASED [None]
  - CEREBRAL HAEMORRHAGE [None]
  - LOSS OF CONSCIOUSNESS [None]
  - PLATELET COUNT INCREASED [None]
  - PNEUMONIA [None]
